FAERS Safety Report 4938393-9 (Version None)
Quarter: 2006Q1

REPORT INFORMATION
  Report Type: 
  Country: None (occurrence: None)
  Receive Date: 20060302
  Receipt Date: 20060217
  Transmission Date: 20060701
  Serious: Yes (Death)
  Sender: FDA-Public Use
  Company Number: 2006JP000425

PATIENT
  Weight: 2.3 kg

DRUGS (1)
  1. FUNGUARD(MICAFUNGIN) INJECTION [Suspect]

REACTIONS (1)
  - THERAPY NON-RESPONDER [None]
